FAERS Safety Report 11828671 (Version 1)
Quarter: 2015Q4

REPORT INFORMATION
  Report Type: Spontaneous
  Country: US (occurrence: US)
  Receive Date: 20151211
  Receipt Date: 20151211
  Transmission Date: 20160305
  Serious: No
  Sender: FDA-Public Use
  Company Number: US-JUBILANT CADISTA PHARMACEUTICALS-2015JUB00352

PATIENT
  Age: 74 Year
  Sex: Female
  Weight: 53.52 kg

DRUGS (2)
  1. CALCITONIN NASAL SPRAY [Concomitant]
     Dosage: 1 DOSAGE UNITS, 1X/DAY
     Route: 045
  2. METHYLPREDNISOLONE. [Suspect]
     Active Substance: METHYLPREDNISOLONE
     Indication: ARTHROPOD BITE
     Dosage: 4 MG, AS DIRECTED
     Route: 048
     Dates: start: 20151019, end: 201510

REACTIONS (2)
  - Urinary tract infection [Recovered/Resolved]
  - Food interaction [Recovered/Resolved]

NARRATIVE: CASE EVENT DATE: 201510
